FAERS Safety Report 13059045 (Version 4)
Quarter: 2017Q4

REPORT INFORMATION
  Report Type: Spontaneous
  Country: JP (occurrence: JP)
  Receive Date: 20161223
  Receipt Date: 20171116
  Transmission Date: 20180320
  Serious: Yes (Death, Other)
  Sender: FDA-Public Use
  Company Number: JP-NOVOPROD-523259

PATIENT
  Age: 71 Year
  Sex: Female
  Weight: 56 kg

DRUGS (10)
  1. VICTOZA [Suspect]
     Active Substance: LIRAGLUTIDE
     Dosage: 0.3 MG, QD
     Route: 058
     Dates: start: 20160916, end: 201612
  2. NOVORAPID [Concomitant]
     Active Substance: INSULIN ASPART
     Dosage: 32 U, QD
     Route: 058
     Dates: start: 20160712
  3. VICTOZA [Suspect]
     Active Substance: LIRAGLUTIDE
     Indication: TYPE 2 DIABETES MELLITUS
     Dosage: UNK
     Route: 058
     Dates: start: 20160419
  4. NOVORAPID [Concomitant]
     Active Substance: INSULIN ASPART
     Indication: TYPE 2 DIABETES MELLITUS
     Dosage: 40 U, QD
     Route: 058
     Dates: start: 20150424
  5. VICTOZA [Suspect]
     Active Substance: LIRAGLUTIDE
     Dosage: 0.9 MG, QD
     Route: 058
     Dates: start: 20160712
  6. NOVORAPID [Concomitant]
     Active Substance: INSULIN ASPART
     Dosage: 36 U, QD
     Route: 058
     Dates: start: 20160517
  7. NOVORAPID [Concomitant]
     Active Substance: INSULIN ASPART
     Dosage: 36 U, QD
     Route: 058
     Dates: start: 20160916
  8. PITAVASTATIN CALCIUM [Concomitant]
     Active Substance: PITAVASTATIN CALCIUM
     Indication: HYPERCHOLESTEROLAEMIA
     Dosage: 1 MG, QD
     Route: 048
     Dates: start: 200810
  9. BROTIZOLAM [Concomitant]
     Active Substance: BROTIZOLAM
     Indication: INSOMNIA
     Dosage: 0.25 MG, QD
     Route: 048
     Dates: start: 200810
  10. VICTOZA [Suspect]
     Active Substance: LIRAGLUTIDE
     Dosage: 0.6 MG, QD
     Route: 058
     Dates: start: 20160517

REACTIONS (1)
  - Pancreatic carcinoma metastatic [Fatal]

NARRATIVE: CASE EVENT DATE: 20161117
